FAERS Safety Report 9458049 (Version 2)
Quarter: 2013Q3

REPORT INFORMATION
  Report Type: Spontaneous
  Country: US (occurrence: US)
  Receive Date: 20130814
  Receipt Date: 20130827
  Transmission Date: 20140515
  Serious: No
  Sender: FDA-Public Use
  Company Number: US-PFIZER INC-2013231563

PATIENT
  Sex: Female

DRUGS (1)
  1. EPIPEN [Suspect]
     Dosage: 0.3 MG, UNK
     Route: 065

REACTIONS (3)
  - Expired drug administered [Recovered/Resolved]
  - Accidental exposure to product [Recovered/Resolved]
  - Injection site hypoaesthesia [Not Recovered/Not Resolved]
